FAERS Safety Report 25852633 (Version 1)
Quarter: 2025Q3

REPORT INFORMATION
  Report Type: Spontaneous
  Country: US (occurrence: None)
  Receive Date: 20250925
  Receipt Date: 20250925
  Transmission Date: 20251021
  Serious: Yes (Life-Threatening, Disabling, Other)
  Sender: FDA-CTU
  Company Number: None

PATIENT
  Age: 36 Year
  Sex: Female
  Weight: 45.81 kg

DRUGS (3)
  1. MIRENA [Suspect]
     Active Substance: LEVONORGESTREL
  2. Megafoods blood builder iron 60MG [Concomitant]
  3. TYLENOL [Concomitant]
     Active Substance: ACETAMINOPHEN

REACTIONS (8)
  - Headache [None]
  - Ovarian cyst [None]
  - Menstruation irregular [None]
  - Back pain [None]
  - Abdominal distension [None]
  - Complication associated with device [None]
  - Depression [None]
  - Suicidal ideation [None]

NARRATIVE: CASE EVENT DATE: 20250620
